FAERS Safety Report 8405304-3 (Version None)
Quarter: 2012Q2

REPORT INFORMATION
  Report Type: 
  Country: None (occurrence: None)
  Receive Date: 20120604
  Receipt Date: 20120529
  Transmission Date: 20120825
  Serious: Yes (Death, Other)
  Sender: FDA-Public Use
  Company Number: US-AMGEN-USASP2012032240

PATIENT
  Age: 62 Year
  Sex: Male
  Weight: 129 kg

DRUGS (7)
  1. ALIMTA [Concomitant]
     Indication: LUNG ADENOCARCINOMA
     Dosage: 1200 MG, UNK
     Route: 042
     Dates: start: 20120516, end: 20120516
  2. NEULASTA [Suspect]
     Indication: NEUTROPENIA
     Dosage: 6 MG, ONE TIME DOSE
     Route: 058
     Dates: start: 20120517, end: 20120517
  3. ANTINEOPLASTIC AGENTS [Concomitant]
     Indication: LUNG ADENOCARCINOMA
  4. ZOFRAN [Concomitant]
     Indication: NAUSEA
     Dosage: 32 MG, UNK
     Route: 042
     Dates: start: 20120516
  5. DECADRON [Concomitant]
     Indication: NAUSEA
     Dosage: 20 MG, QD
     Route: 042
     Dates: start: 20120516, end: 20120516
  6. CARBOPLATIN [Concomitant]
     Indication: LUNG NEOPLASM MALIGNANT
     Dosage: 600 MG, UNK
     Route: 042
     Dates: start: 20120516, end: 20120516
  7. XGEVA [Suspect]
     Indication: METASTASES TO BONE
     Dosage: 120 MG, ONE TIME DOSE
     Route: 058
     Dates: start: 20120517, end: 20120517

REACTIONS (7)
  - HYPOCALCAEMIA [None]
  - HAEMOPTYSIS [None]
  - CONSTIPATION [None]
  - PULMONARY EMBOLISM [None]
  - RESPIRATORY FAILURE [None]
  - HAEMATEMESIS [None]
  - LUNG INFILTRATION [None]
